FAERS Safety Report 6239505-X (Version None)
Quarter: 2009Q2

REPORT INFORMATION
  Report Type: 
  Country: None (occurrence: None)
  Receive Date: 20090622
  Receipt Date: 20090616
  Transmission Date: 20091009
  Serious: Yes (Hospitalization)
  Sender: FDA-Public Use
  Company Number: NL-B.I. PHARMACEUTICALS,INC./RIDGEFIELD-2009-NL-00393NL

PATIENT
  Sex: Male
  Weight: 84 kg

DRUGS (4)
  1. ASASANTIN RETARD [Suspect]
     Indication: CEREBRAL INFARCTION
     Dosage: STRENGTH: 25/200MG 2DD1
     Dates: start: 20020915
  2. RAMIPRIL [Suspect]
     Indication: CEREBRAL INFARCTION
     Dosage: 10 MG
     Dates: start: 20020915
  3. PRAVASTATIN NATRIUM [Concomitant]
     Dosage: 40 MG
     Dates: start: 20020915
  4. NEXIUM [Concomitant]
     Dosage: 40 MG
     Dates: start: 20020915

REACTIONS (1)
  - CATARACT [None]
